FAERS Safety Report 8389744-7 (Version None)
Quarter: 2012Q2

REPORT INFORMATION
  Report Type: 
  Country: None (occurrence: None)
  Receive Date: 20120524
  Receipt Date: 20120524
  Transmission Date: 20120825
  Serious: Yes (Other)
  Sender: FDA-Public Use
  Company Number: None

PATIENT
  Sex: Male
  Weight: 113.3993 kg

DRUGS (1)
  1. SOMA [Suspect]
     Dosage: 350 MG. (1) AT NIGHT  4/14 - 17 / (3) PILLS

REACTIONS (6)
  - GAIT DISTURBANCE [None]
  - BACK PAIN [None]
  - CONDITION AGGRAVATED [None]
  - PARADOXICAL DRUG REACTION [None]
  - PRODUCT SUBSTITUTION ISSUE [None]
  - ARTHRALGIA [None]
